FAERS Safety Report 14181775 (Version 1)
Quarter: 2017Q4

REPORT INFORMATION
  Report Type: Spontaneous
  Country: US (occurrence: US)
  Receive Date: 20171111
  Receipt Date: 20171111
  Transmission Date: 20180321
  Serious: Yes (Other)
  Sender: FDA-Public Use
  Company Number: None

PATIENT
  Age: 64 Year
  Sex: Male
  Weight: 72 kg

DRUGS (5)
  1. NASONEX [Concomitant]
     Active Substance: MOMETASONE FUROATE
  2. NUVIGIL [Suspect]
     Active Substance: ARMODAFINIL
     Indication: CRANIOCEREBRAL INJURY
     Dosage: ?          QUANTITY:1 TABLET(S);?
     Route: 048
     Dates: start: 20170821, end: 20171023
  3. NUVIGIL [Suspect]
     Active Substance: ARMODAFINIL
     Indication: DIFFUSE AXONAL INJURY
     Dosage: ?          QUANTITY:1 TABLET(S);?
     Route: 048
     Dates: start: 20170821, end: 20171023
  4. NUVIGIL [Suspect]
     Active Substance: ARMODAFINIL
     Indication: COGNITIVE DISORDER
     Dosage: ?          QUANTITY:1 TABLET(S);?
     Route: 048
     Dates: start: 20170821, end: 20171023
  5. ALLEGRA-D24 [Concomitant]

REACTIONS (6)
  - Myalgia [None]
  - Movement disorder [None]
  - Muscle spasms [None]
  - Drug effect incomplete [None]
  - Crying [None]
  - Drug withdrawal syndrome [None]

NARRATIVE: CASE EVENT DATE: 20171109
